FAERS Safety Report 10402966 (Version 3)
Quarter: 2014Q4

REPORT INFORMATION
  Report Type: Report from Study
  Country: US (occurrence: US)
  Receive Date: 20140822
  Receipt Date: 20141027
  Transmission Date: 20150528
  Serious: Yes (Hospitalization)
  Sender: FDA-Public Use
  Company Number: PHEH2014US016357

PATIENT
  Age: 50 Year
  Sex: Female
  Weight: 69.5 kg

DRUGS (4)
  1. HYDROCHLOROTHIAZIDE. [Concomitant]
     Active Substance: HYDROCHLOROTHIAZIDE
     Indication: HYPERTENSION
  2. NEURONTIN [Concomitant]
     Active Substance: GABAPENTIN
     Dosage: 300 MG, 1 TO 2 TABLETS ONCE A DAY
     Route: 048
  3. LISINOPRIL. [Concomitant]
     Active Substance: LISINOPRIL
     Indication: HYPERTENSION
  4. GILENYA [Suspect]
     Active Substance: FINGOLIMOD HYDROCHLORIDE
     Indication: MULTIPLE SCLEROSIS
     Dosage: 0.5 MG, QD
     Route: 048
     Dates: start: 20140422, end: 20140725

REACTIONS (57)
  - Lymphocyte percentage decreased [Unknown]
  - Lymphocyte count decreased [Unknown]
  - Blood alkaline phosphatase increased [Unknown]
  - Aspartate aminotransferase increased [Unknown]
  - Nausea [Unknown]
  - Blood glucose increased [Unknown]
  - Calcium ionised decreased [Unknown]
  - Blood phosphorus decreased [Unknown]
  - Chills [Unknown]
  - Mean cell haemoglobin concentration decreased [Unknown]
  - Syncope [Recovered/Resolved]
  - Dizziness [Unknown]
  - Full blood count decreased [Unknown]
  - Platelet count decreased [Unknown]
  - Malaise [Unknown]
  - Hyperhidrosis [Unknown]
  - Blood immunoglobulin M decreased [Unknown]
  - Mean cell haemoglobin decreased [Unknown]
  - Red cell distribution width increased [Unknown]
  - Hypovolaemia [Recovered/Resolved]
  - Monocyte count decreased [Unknown]
  - Renal disorder [Unknown]
  - Acute sinusitis [Unknown]
  - Tenderness [Unknown]
  - Hypophagia [Unknown]
  - Epistaxis [Unknown]
  - Blood potassium decreased [Unknown]
  - Glycosylated haemoglobin increased [Unknown]
  - Granulocytes maturation arrest [Unknown]
  - Vomiting [Unknown]
  - Pyrexia [Unknown]
  - Orthostatic hypotension [Recovered/Resolved]
  - Liver injury [Unknown]
  - Sinus headache [Unknown]
  - Blood urea increased [Unknown]
  - Blood albumin decreased [Unknown]
  - Blood immunoglobulin G decreased [Unknown]
  - Asthenia [Unknown]
  - Loss of consciousness [Unknown]
  - Anaemia [Unknown]
  - Red blood cell count decreased [Unknown]
  - Haemoglobin decreased [Unknown]
  - Haematocrit decreased [Unknown]
  - Sinus congestion [Unknown]
  - Headache [Unknown]
  - Liver function test abnormal [Unknown]
  - Alanine aminotransferase increased [Unknown]
  - Pain in extremity [Unknown]
  - Neutrophil percentage increased [Unknown]
  - Mean cell volume decreased [Unknown]
  - Pancytopenia [Recovered/Resolved]
  - White blood cell count decreased [Unknown]
  - Thrombocytopenia [Unknown]
  - Transaminases increased [Unknown]
  - Blood calcium decreased [Unknown]
  - Blood chloride increased [Unknown]
  - Carbon dioxide decreased [Unknown]

NARRATIVE: CASE EVENT DATE: 20140721
